FAERS Safety Report 18241467 (Version 4)
Quarter: 2021Q2

REPORT INFORMATION
  Report Type: Report from Study
  Country: None (occurrence: GB)
  Receive Date: 20200908
  Receipt Date: 20210628
  Transmission Date: 20210717
  Serious: Yes (Hospitalization, Other)
  Sender: FDA-Public Use
  Company Number: GB-MDD US OPERATIONS-MDD202007-001549

PATIENT
  Age: 76 Year
  Sex: Male

DRUGS (9)
  1. APOMORPHINE HYDROCHLORIDE [Suspect]
     Active Substance: APOMORPHINE HYDROCHLORIDE
     Indication: PARKINSON^S DISEASE
     Route: 058
     Dates: start: 20200715
  2. APOMORPHINE HYDROCHLORIDE [Suspect]
     Active Substance: APOMORPHINE HYDROCHLORIDE
     Route: 058
     Dates: start: 20200715
  3. STALEVO [Concomitant]
     Active Substance: CARBIDOPA\ENTACAPONE\LEVODOPA
     Indication: PARKINSON^S DISEASE
  4. COENZYME Q10 [Concomitant]
     Active Substance: DIETARY SUPPLEMENT\UBIDECARENONE
     Dosage: NOT PROVIDED
  5. ROPINIROLE. [Concomitant]
     Active Substance: ROPINIROLE
     Indication: INFLAMMATORY BOWEL DISEASE
  6. ROPINIROLE. [Concomitant]
     Active Substance: ROPINIROLE
     Indication: PARKINSON^S DISEASE
  7. ALENDRONIC ACID [Concomitant]
     Active Substance: ALENDRONIC ACID
     Dosage: NOT PROVIDED
  8. LACTULOSE. [Concomitant]
     Active Substance: LACTULOSE
     Dosage: NOT PROVIDED
  9. ADCAL [Concomitant]
     Dosage: NOT PROVIDED

REACTIONS (12)
  - Injection site infection [Unknown]
  - Oedema peripheral [Unknown]
  - Administration site nodule [Recovered/Resolved]
  - Infusion site bruising [Unknown]
  - Urinary tract infection [Unknown]
  - Injection site inflammation [Recovered/Resolved]
  - Injection site haemorrhage [Recovered/Resolved]
  - Injection site erythema [Recovered/Resolved]
  - Rales [Unknown]
  - Pyrexia [Unknown]
  - Malaise [Unknown]
  - Injection site swelling [Recovered/Resolved]

NARRATIVE: CASE EVENT DATE: 2020
